FAERS Safety Report 8407990-0 (Version None)
Quarter: 2012Q2

REPORT INFORMATION
  Report Type: 
  Country: None (occurrence: None)
  Receive Date: 20120604
  Receipt Date: 20120524
  Transmission Date: 20120825
  Serious: Yes (Hospitalization, Disabling, Other)
  Sender: FDA-Public Use
  Company Number: US-MERCK-1109USA02546

PATIENT
  Age: 47 Year
  Sex: Male
  Weight: 64 kg

DRUGS (26)
  1. METHADONE HYDROCHLORIDE [Concomitant]
     Indication: PAIN
     Route: 065
     Dates: start: 20040101, end: 20060101
  2. FOSAMAX [Suspect]
     Route: 048
     Dates: start: 20080601, end: 20090901
  3. HYDROCODONE [Concomitant]
     Indication: PAIN
     Route: 065
     Dates: start: 20010101
  4. VERAPAMIL [Concomitant]
     Route: 048
  5. AMOXICILLIN [Concomitant]
     Route: 065
  6. LORCET-HD [Concomitant]
     Indication: PAIN
     Route: 065
  7. ALENDRONATE SODIUM [Suspect]
     Indication: OSTEOPOROSIS
     Route: 048
     Dates: start: 20080701, end: 20090801
  8. EFFEXOR [Concomitant]
     Indication: CONVULSION
     Route: 065
  9. VICODIN [Concomitant]
     Indication: PAIN
     Route: 065
     Dates: end: 20110601
  10. METOPROLOL [Concomitant]
     Indication: HYPERTENSION
     Route: 065
     Dates: start: 20060101
  11. CELEBREX [Concomitant]
     Indication: PAIN
     Route: 048
     Dates: start: 20000101, end: 20100301
  12. AVINZA [Concomitant]
     Indication: PAIN
     Route: 048
     Dates: start: 20060101, end: 20060101
  13. DILANTIN [Concomitant]
     Indication: CONVULSION
     Route: 048
     Dates: start: 19990101
  14. ENALAPRIL MALEATE [Concomitant]
     Indication: HYPERTENSION
     Route: 048
     Dates: start: 20060101, end: 20071001
  15. NEURONTIN [Concomitant]
     Indication: EPILEPSY
     Route: 065
  16. NORCO [Concomitant]
     Indication: PAIN
     Route: 065
     Dates: start: 20010101
  17. PHENYTOIN [Concomitant]
     Route: 065
  18. ZYPREXA [Concomitant]
     Indication: ANXIETY
     Route: 065
     Dates: start: 20080201, end: 20080501
  19. TOPAMAX [Concomitant]
     Indication: CONVULSION
     Route: 065
  20. FOSAMAX [Suspect]
     Indication: OSTEOPOROSIS
     Route: 048
     Dates: start: 20000101, end: 20080501
  21. FOSAMAX [Suspect]
     Route: 048
     Dates: start: 20060401
  22. KADIAN [Concomitant]
     Indication: PAIN
     Route: 048
     Dates: start: 20060101
  23. KLONOPIN [Concomitant]
     Indication: ANXIETY
     Route: 048
     Dates: start: 19990101
  24. ATIVAN [Concomitant]
     Indication: ANXIETY
     Route: 065
  25. SOMA [Concomitant]
     Indication: PAIN
     Route: 048
  26. PEN-VEE K [Concomitant]
     Route: 065

REACTIONS (65)
  - NECK INJURY [None]
  - JAW DISORDER [None]
  - THERMAL BURN [None]
  - SLEEP DISORDER [None]
  - VISION BLURRED [None]
  - DEVICE RELATED INFECTION [None]
  - FALL [None]
  - ALCOHOLISM [None]
  - ARTHRITIS [None]
  - BONE LOSS [None]
  - MAJOR DEPRESSION [None]
  - INTERVERTEBRAL DISC DEGENERATION [None]
  - DIABETES MELLITUS [None]
  - OEDEMA PERIPHERAL [None]
  - KYPHOSIS [None]
  - INAPPROPRIATE SCHEDULE OF DRUG ADMINISTRATION [None]
  - HIATUS HERNIA [None]
  - FOOT DEFORMITY [None]
  - NOCTURIA [None]
  - MIGRAINE [None]
  - FISTULA DISCHARGE [None]
  - BALANCE DISORDER [None]
  - OSTEOMYELITIS [None]
  - TRANSIENT ISCHAEMIC ATTACK [None]
  - DEMENTIA [None]
  - PELVIC FRACTURE [None]
  - WRIST FRACTURE [None]
  - BONE LESION [None]
  - JOINT INJURY [None]
  - DIVERTICULUM [None]
  - DEEP VEIN THROMBOSIS [None]
  - VENTRICULAR HYPERTROPHY [None]
  - MYELOMALACIA [None]
  - LIMB DEFORMITY [None]
  - DIARRHOEA [None]
  - BACK PAIN [None]
  - SUBDURAL HAEMATOMA [None]
  - INTERVERTEBRAL DISC PROTRUSION [None]
  - HAEMORRHOIDS [None]
  - ANKLE FRACTURE [None]
  - HUMERUS FRACTURE [None]
  - FATIGUE [None]
  - CHRONIC OBSTRUCTIVE PULMONARY DISEASE [None]
  - KETOACIDOSIS [None]
  - CEREBROVASCULAR ACCIDENT [None]
  - OSTEONECROSIS OF JAW [None]
  - APPETITE DISORDER [None]
  - DEPRESSION [None]
  - DENTAL CARIES [None]
  - COMPRESSION FRACTURE [None]
  - TOOTH DISORDER [None]
  - ANGIOPATHY [None]
  - INCREASED APPETITE [None]
  - GASTRITIS [None]
  - AGITATION [None]
  - ALCOHOL WITHDRAWAL SYNDROME [None]
  - COORDINATION ABNORMAL [None]
  - DRUG LEVEL INCREASED [None]
  - DRUG INEFFECTIVE [None]
  - RIB FRACTURE [None]
  - PERIODONTAL DISEASE [None]
  - PATHOLOGICAL FRACTURE [None]
  - LEFT ATRIAL DILATATION [None]
  - LIPIDS INCREASED [None]
  - PROSTATOMEGALY [None]
